FAERS Safety Report 6270275-5 (Version None)
Quarter: 2009Q3

REPORT INFORMATION
  Report Type: 
  Country: None (occurrence: None)
  Receive Date: 20090716
  Receipt Date: 20090708
  Transmission Date: 20100115
  Serious: Yes (Hospitalization, Other)
  Sender: FDA-Public Use
  Company Number: US-ELI_LILLY_AND_COMPANY-US200907001533

PATIENT
  Sex: Female
  Weight: 92.063 kg

DRUGS (18)
  1. BYETTA [Suspect]
     Indication: TYPE 2 DIABETES MELLITUS
     Dosage: 5 UG, 2/D
     Route: 058
     Dates: start: 20050701, end: 20050801
  2. BYETTA [Suspect]
     Dosage: 10 UG, 2/D
     Route: 058
     Dates: start: 20050801, end: 20080801
  3. BYETTA [Suspect]
     Dosage: 5 UG, 2/D
     Route: 058
     Dates: start: 20090101, end: 20090201
  4. BYETTA [Suspect]
     Dosage: 10 UG, 2/D
     Route: 058
     Dates: start: 20090201
  5. LANTUS [Concomitant]
     Dosage: 35 U, EACH EVENING
  6. METFORMIN HCL [Concomitant]
     Dosage: UNK, 2/D
  7. OMEPRAZOLE [Concomitant]
     Dosage: UNK, DAILY (1/D)
  8. MICARDIS [Concomitant]
     Dosage: UNK, DAILY (1/D)
  9. SYNERA [Concomitant]
     Dosage: UNK, DAILY (1/D)
  10. PRAVASTATIN [Concomitant]
     Dosage: UNK, DAILY (1/D)
  11. CYCLOBENZAPRINE [Concomitant]
     Dosage: UNK, 2/D
  12. MOXIFLOXACIN HCL [Concomitant]
     Dosage: UNK, DAILY (1/D)
  13. GABAPENTIN [Concomitant]
     Dosage: UNK, 3/D
  14. FEXOFENADINE [Concomitant]
     Dosage: UNK, AS NEEDED
  15. CYMBALTA [Concomitant]
     Dosage: UNK, DAILY (1/D)
  16. CALCIUM [Concomitant]
     Dosage: UNK, DAILY (1/D)
  17. POTASSIUM CHLORIDE [Concomitant]
     Dosage: UNK, DAILY (1/D)
  18. PERCOCET [Concomitant]
     Dosage: UNK, AS NEEDED

REACTIONS (9)
  - ADRENAL DISORDER [None]
  - AMNESIA [None]
  - BACK PAIN [None]
  - EXPIRED DRUG ADMINISTERED [None]
  - NAUSEA [None]
  - OFF LABEL USE [None]
  - POST PROCEDURAL COMPLICATION [None]
  - SPINAL DISORDER [None]
  - WEIGHT DECREASED [None]
